FAERS Safety Report 8157834-X (Version None)
Quarter: 2012Q1

REPORT INFORMATION
  Report Type: 
  Country: None (occurrence: None)
  Receive Date: 20120222
  Receipt Date: 20120216
  Transmission Date: 20120608
  Serious: Yes (Hospitalization, Congenital Anomaly, Other)
  Sender: FDA-Public Use
  Company Number: US-PFIZER INC-2011159887

PATIENT
  Sex: Female
  Weight: 2.7 kg

DRUGS (5)
  1. MULTI-VITAMINS [Concomitant]
     Dosage: UNK
     Route: 064
     Dates: start: 20030715
  2. ZOLOFT [Suspect]
     Indication: DEPRESSION
     Dosage: 100 MG ONE AND HALF TABLET ORALLY ONCE EVERY DAY
     Route: 064
     Dates: start: 20030101
  3. PENICILLIN [Concomitant]
     Indication: BACTERIAL TEST POSITIVE
     Dosage: UNK
     Route: 064
  4. ZOLOFT [Suspect]
     Indication: ANXIETY
     Dosage: 150 MG, 1X/DAY
     Route: 064
     Dates: start: 20030910
  5. ZOLOFT [Suspect]
     Dosage: 50 MG, 1X/DAY
     Route: 064
     Dates: start: 20031115

REACTIONS (18)
  - VON WILLEBRAND'S DISEASE [None]
  - PULMONARY VALVE INCOMPETENCE [None]
  - PREMATURE BABY [None]
  - TRICUSPID VALVE INCOMPETENCE [None]
  - HYPERTENSION [None]
  - COR TRIATRIATUM [None]
  - PNEUMOVIRUS TEST POSITIVE [None]
  - BRONCHIOLITIS [None]
  - SINUS TACHYCARDIA [None]
  - ANOMALOUS PULMONARY VENOUS CONNECTION [None]
  - PNEUMONIA [None]
  - STREPTOCOCCUS TEST POSITIVE [None]
  - LEFT VENTRICULAR HYPERTROPHY [None]
  - MATERNAL EXPOSURE TIMING UNSPECIFIED [None]
  - MITRAL VALVE INCOMPETENCE [None]
  - ATRIAL SEPTAL DEFECT [None]
  - SINUS BRADYCARDIA [None]
  - RIGHT VENTRICULAR HYPERTROPHY [None]
